FAERS Safety Report 6756715-3 (Version None)
Quarter: 2010Q2

REPORT INFORMATION
  Report Type: 
  Country: None (occurrence: None)
  Receive Date: 20100603
  Receipt Date: 20100603
  Transmission Date: 20101027
  Serious: Yes (Other)
  Sender: FDA-Public Use
  Company Number: None

PATIENT
  Age: 53 Year
  Sex: Female
  Weight: 66.2252 kg

DRUGS (1)
  1. LOSARTAN + HYDROCHLOROTHIAZIDE SANDOZ [Suspect]
     Indication: HYPERTENSION
     Dosage: 50 12.5MG 1 QD ORAL
     Route: 048
     Dates: start: 20100516

REACTIONS (5)
  - BODY TEMPERATURE INCREASED [None]
  - PRODUCT SUBSTITUTION ISSUE [None]
  - PRURITUS [None]
  - RASH GENERALISED [None]
  - URTICARIA [None]
